FAERS Safety Report 10033156 (Version 2)
Quarter: 2014Q2

REPORT INFORMATION
  Report Type: Report from Study
  Country: US (occurrence: US)
  Receive Date: 20140324
  Receipt Date: 20140603
  Transmission Date: 20141212
  Serious: Yes (Hospitalization)
  Sender: FDA-Public Use
  Company Number: US-BAXTER-2014BAX014553

PATIENT
  Age: 10 Year
  Sex: Female
  Weight: 46.2 kg

DRUGS (7)
  1. CYCLOPHOSPHAMIDE FOR INJECTION, USP [Suspect]
     Indication: EWING^S SARCOMA
     Route: 042
     Dates: start: 20131122, end: 20131126
  2. CRIZOTINIB [Suspect]
     Indication: EWING^S SARCOMA
     Route: 048
     Dates: start: 20131122, end: 20131128
  3. CRIZOTINIB [Suspect]
     Dosage: DOSE REDUCED LEVEL
     Route: 048
     Dates: start: 20131211, end: 20140117
  4. TOPOTECAN HYDROCHLORIDE [Suspect]
     Indication: EWING^S SARCOMA
     Route: 042
     Dates: start: 20131122, end: 20131126
  5. PROMETHAZINE [Concomitant]
     Indication: VOMITING
     Route: 065
  6. ONDANSETRON HYDROCHLORIDE [Concomitant]
     Indication: VOMITING
     Route: 065
  7. DIPHENHYDRAMINE HYDROCHLORIDE [Concomitant]
     Indication: VOMITING
     Route: 065

REACTIONS (3)
  - Dehydration [Recovered/Resolved]
  - Vomiting [Recovered/Resolved]
  - Nausea [Recovered/Resolved]
